FAERS Safety Report 24811264 (Version 1)
Quarter: 2025Q1

REPORT INFORMATION
  Report Type: Spontaneous
  Country: US (occurrence: None)
  Receive Date: 20250106
  Receipt Date: 20250106
  Transmission Date: 20250409
  Serious: No
  Sender: FDA-CTU
  Company Number: None

PATIENT
  Age: 45 Year
  Sex: Female
  Weight: 49.5 kg

DRUGS (1)
  1. OXYMETAZOLINE\TRIAMCINOLONE [Suspect]
     Active Substance: OXYMETAZOLINE\TRIAMCINOLONE
     Indication: Nasal congestion

REACTIONS (1)
  - Rebound nasal congestion [None]

NARRATIVE: CASE EVENT DATE: 20241110
